FAERS Safety Report 10174693 (Version 1)
Quarter: 2014Q2

REPORT INFORMATION
  Report Type: Spontaneous
  Country: US (occurrence: None)
  Receive Date: 20140416
  Receipt Date: 20140416
  Transmission Date: 20141212
  Serious: Yes (Other)
  Sender: FDA-Public Use
  Company Number: 163-POMAL-13111758

PATIENT
  Age: 66 Year
  Sex: Male

DRUGS (4)
  1. POMALYST [Suspect]
     Indication: PLASMA CELL MYELOMA
     Dosage: 4 MG, 21 IN 21 D, PO
     Route: 048
     Dates: start: 20130926
  2. DEXAMETHASONE (DEXAMETHASONE) (UNKNOWN) [Suspect]
     Indication: PRODUCT USED FOR UNKNOWN INDICATION
     Dosage: NOT PROVIDED, UNK
     Dates: start: 2013
  3. VELCADE (BORTEZOMIB) (UNKNOWN) [Concomitant]
  4. AREDIA (PAMIDRONATE DISODIUM) (UNKNOWN) [Concomitant]

REACTIONS (2)
  - Swelling face [None]
  - Thrombocytopenia [None]
